FAERS Safety Report 7588328-8 (Version None)
Quarter: 2011Q2

REPORT INFORMATION
  Report Type: 
  Country: None (occurrence: None)
  Receive Date: 20110627
  Receipt Date: 20110614
  Transmission Date: 20111010
  Serious: Yes (Death)
  Sender: FDA-Public Use
  Company Number: B0727439A

PATIENT

DRUGS (1)
  1. DIGOXIN [Suspect]

REACTIONS (1)
  - TOXICITY TO VARIOUS AGENTS [None]
